FAERS Safety Report 12489616 (Version 1)
Quarter: 2016Q2

REPORT INFORMATION
  Report Type: Spontaneous
  Country: DK (occurrence: DK)
  Receive Date: 20160622
  Receipt Date: 20160622
  Transmission Date: 20160815
  Serious: Yes (Hospitalization)
  Sender: FDA-Public Use
  Company Number: DK-WATSON-2016-13047

PATIENT
  Age: 39 Year
  Sex: Male

DRUGS (1)
  1. TETRACYCLIN ACTAVIS [Suspect]
     Active Substance: TETRACYCLINE
     Indication: PNEUMONIA
     Dosage: UNK UNK, UNKNOWN
     Route: 048
     Dates: start: 20140909, end: 20140912

REACTIONS (10)
  - Pruritus [Unknown]
  - Dyspnoea [Unknown]
  - Lip swelling [Unknown]
  - Oral mucosal blistering [Unknown]
  - Rash [Unknown]
  - Abdominal pain [Unknown]
  - Throat tightness [Unknown]
  - Pain [Unknown]
  - Drug hypersensitivity [Unknown]
  - Swollen tongue [Unknown]

NARRATIVE: CASE EVENT DATE: 20140911
